FAERS Safety Report 8861934 (Version 2)
Quarter: 2012Q4

REPORT INFORMATION
  Report Type: 
  Country: ES (occurrence: ES)
  Receive Date: 20121026
  Receipt Date: 20121101
  Transmission Date: 20130627
  Serious: Yes (Other)
  Sender: FDA-Public Use
  Company Number: ES-009507513-1210ESP008101

PATIENT
  Age: 51 Year
  Sex: Female
  Weight: 60 kg

DRUGS (4)
  1. AMITRIPTYLINE HYDROCHLORIDE [Suspect]
     Indication: PRODUCT USED FOR UNKNOWN INDICATION
     Dosage: 10 mg, UNK
     Route: 048
     Dates: start: 2011
  2. ANASTROZOLE [Suspect]
     Dosage: 1 mg, UNK
     Route: 048
     Dates: start: 20110528, end: 20110802
  3. ANASTROZOLE [Suspect]
     Dosage: UNK
     Route: 048
     Dates: start: 201108
  4. CALCIUM SANDOZ D3 [Concomitant]
     Dosage: 1000mg/880 iv
     Route: 048

REACTIONS (4)
  - Leukopenia [Recovered/Resolved]
  - Neutropenia [Recovered/Resolved]
  - Leukopenia [Unknown]
  - Neutropenia [Unknown]
